FAERS Safety Report 7599403-6 (Version None)
Quarter: 2011Q3

REPORT INFORMATION
  Report Type: 
  Country: None (occurrence: None)
  Receive Date: 20110711
  Receipt Date: 20110328
  Transmission Date: 20111222
  Serious: Yes (Hospitalization, Other)
  Sender: FDA-Public Use
  Company Number: TW-BAYER-201046235GPV

PATIENT
  Age: 75 Year
  Sex: Male
  Weight: 87 kg

DRUGS (20)
  1. ABT-869 (LINIFANIB) (DRUG NOT GIVEN) [Suspect]
     Indication: HEPATIC NEOPLASM MALIGNANT
  2. SORAFENIB (RAF KINASE INHIBITOR) [Suspect]
     Dosage: 400 MG, QOD
     Route: 048
     Dates: start: 20100809, end: 20100829
  3. GENTAMICIN [Concomitant]
     Indication: PALMAR-PLANTAR ERYTHRODYSAESTHESIA SYNDROME
     Dates: start: 20100719
  4. BUPRENORPHINE [Concomitant]
     Indication: ABDOMINAL PAIN
     Dosage: 0.2 MG (DAILY DOSE), PRN,
     Dates: start: 20100726
  5. DIMETICONE [Concomitant]
     Indication: ABDOMINAL DISTENSION
     Dates: start: 20100712
  6. SORAFENIB (RAF KINASE INHIBITOR) [Suspect]
     Dosage: 400 MG, QOD
     Route: 048
     Dates: end: 20100910
  7. ACETYLCYSTEINE [Concomitant]
     Indication: ATELECTASIS
     Dates: start: 20100312
  8. SORAFENIB (RAF KINASE INHIBITOR) [Suspect]
     Indication: HEPATIC NEOPLASM MALIGNANT
     Route: 048
     Dates: start: 20100628, end: 20100718
  9. SORAFENIB (RAF KINASE INHIBITOR) [Suspect]
     Dosage: 400 MG, QD
     Route: 048
     Dates: start: 20100719, end: 20100808
  10. SITAGLIPTIN [Concomitant]
     Indication: DIABETES MELLITUS
     Dosage: 100 MG (DAILY DOSE), ,
     Dates: start: 20091230
  11. FLUDIAZEPAM [Concomitant]
     Indication: ANXIETY
     Dates: start: 20100712
  12. GLYBURIDE [Concomitant]
     Indication: DIABETES MELLITUS
     Dates: start: 20100823
  13. COUGH AND COLD PREPARATIONS [Concomitant]
     Indication: ATELECTASIS
     Dosage: 20 ML, TID
     Dates: start: 20100428
  14. METFORMIN HCL [Concomitant]
     Indication: DIABETES MELLITUS
     Dates: start: 20100326
  15. FENOTEROL [Concomitant]
     Indication: ATELECTASIS
     Dosage: 2.5 MG (DAILY DOSE), ,
     Dates: start: 20100302
  16. AMLODIPINE [Concomitant]
     Indication: HYPERTENSION
     Dosage: 5 MG (DAILY DOSE), ,
     Dates: start: 20100719
  17. IMIPRAMINE HYDROCHLORIDE [Concomitant]
     Indication: URINARY INCONTINENCE
     Dosage: 25 MG (DAILY DOSE), HS,
     Dates: start: 20100726
  18. PIRACETAM [Concomitant]
     Indication: MEMORY IMPAIRMENT
     Dosage: 1200 MG (DAILY DOSE), ,
     Dates: start: 20100809
  19. MAGNESIUM OXIDE [Concomitant]
     Indication: CONSTIPATION
     Dates: start: 20100823
  20. COUGH MIXTURE A [Concomitant]
     Dates: start: 20100428

REACTIONS (5)
  - ASTHENIA [None]
  - HYPONATRAEMIA [None]
  - HYPOPHAGIA [None]
  - STAPHYLOCOCCAL SEPSIS [None]
  - DIZZINESS [None]
